FAERS Safety Report 5105632-3 (Version None)
Quarter: 2006Q4

REPORT INFORMATION
  Report Type: 
  Country: None (occurrence: None)
  Receive Date: 20060731
  Receipt Date: 20060510
  Transmission Date: 20070319
  Serious: Yes (Hospitalization)
  Sender: FDA-Public Use
  Company Number: US-JNJFOC-20060502718

PATIENT
  Age: 16 Year
  Sex: Female
  Weight: 70.7611 kg

DRUGS (3)
  1. RISPERDAL [Suspect]
     Indication: DEPRESSION
     Dosage: 2 MG, 1 IN 1 DAY, ORAL
     Route: 048
     Dates: start: 20060101, end: 20060401
  2. LITHIUM CARBONATE [Concomitant]
  3. PROZAC [Concomitant]

REACTIONS (2)
  - HALLUCINATION [None]
  - MANIA [None]
